FAERS Safety Report 8301970 (Version 2)
Quarter: 2014Q1

REPORT INFORMATION
  Report Type: Spontaneous
  Country: US (occurrence: None)
  Receive Date: 20111129
  Receipt Date: 20130507
  Transmission Date: 20141002
  Serious: No
  Sender: FDA-Public Use
  Company Number: PHHY2011US59396

PATIENT
  Age: 3 Year
  Sex: Female
  Weight: 13.2 kg

DRUGS (6)
  1. AFINITOR [Suspect]
     Indication: TUBEROUS SCLEROSIS
     Dosage: 5 MG, DAILY, ORAL
     Route: 048
     Dates: start: 20110421
  2. PULMICORT FLEXHALER [Concomitant]
  3. XOPENEX [Concomitant]
  4. KEPPRA [Concomitant]
  5. TAURINE [Concomitant]
  6. VITAMINS NOS [Concomitant]

REACTIONS (5)
  - Contusion [None]
  - Oral discomfort [None]
  - Acne [None]
  - Stomatitis [None]
  - Nasopharyngitis [None]
